FAERS Safety Report 7631053-5 (Version None)
Quarter: 2011Q3

REPORT INFORMATION
  Report Type: 
  Country: None (occurrence: None)
  Receive Date: 20110715
  Receipt Date: 20110707
  Transmission Date: 20111222
  Serious: Yes (Hospitalization)
  Sender: FDA-Public Use
  Company Number: UK-ACCORD-001814

PATIENT
  Age: 56 Year
  Sex: Male

DRUGS (2)
  1. MYCOPHENOLATE MOFETIL [Suspect]
     Indication: IMMUNOSUPPRESSION
     Dosage: 1.00-G-2.00 TIMES PER-1.0DAYS
     Dates: start: 20040101
  2. CYCLOPORIN (CYCLOPORIN) [Concomitant]

REACTIONS (8)
  - VOMITING [None]
  - DEHYDRATION [None]
  - MALABSORPTION [None]
  - CAMPYLOBACTER INFECTION [None]
  - WEIGHT DECREASED [None]
  - DIARRHOEA [None]
  - ENTERITIS [None]
  - STEATORRHOEA [None]
